FAERS Safety Report 7802215-9 (Version None)
Quarter: 2011Q4

REPORT INFORMATION
  Report Type: 
  Country: None (occurrence: None)
  Receive Date: 20111007
  Receipt Date: 20110929
  Transmission Date: 20120403
  Serious: Yes (Life-Threatening, Hospitalization)
  Sender: FDA-Public Use
  Company Number: AU-ROXANE LABORATORIES, INC.-2011-DE-05509GD

PATIENT
  Age: 83 Year
  Sex: Female

DRUGS (3)
  1. MORPHINE [Suspect]
     Indication: PREMEDICATION
     Dosage: 2.5 MG
  2. FENTANYL [Suspect]
     Indication: SEDATIVE THERAPY
     Dosage: 50 MCG
     Route: 051
  3. PROPOFOL [Suspect]
     Indication: SEDATIVE THERAPY
     Dosage: 50 MG
     Route: 051

REACTIONS (3)
  - HYPOVENTILATION [None]
  - OBSTRUCTIVE AIRWAYS DISORDER [None]
  - ASPIRATION [None]
